FAERS Safety Report 9144269 (Version 6)
Quarter: 2014Q4

REPORT INFORMATION
  Report Type: Spontaneous
  Country: US (occurrence: US)
  Receive Date: 20130306
  Receipt Date: 20141209
  Transmission Date: 20150529
  Serious: Yes (Hospitalization, Disabling, Other)
  Sender: FDA-Public Use
  Company Number: US-009507513-1103USA00991

PATIENT
  Sex: Female
  Weight: 78.91 kg

DRUGS (6)
  1. FOSAMAX [Suspect]
     Active Substance: ALENDRONATE SODIUM
     Indication: OSTEOPENIA
     Dosage: 10 MG, UNK
     Route: 048
     Dates: start: 200009, end: 200509
  2. CALCIUM (UNSPECIFIED) [Concomitant]
     Active Substance: CALCIUM
     Dosage: 600 MG, BID
     Dates: start: 2000
  3. VITAMINS (UNSPECIFIED) [Concomitant]
     Active Substance: VITAMINS
     Dosage: UNK UNK, QD
     Route: 048
     Dates: start: 2000
  4. VITAMIN D [Concomitant]
     Active Substance: CHOLECALCIFEROL
     Dosage: 1000 IU, QD
     Dates: start: 2001
  5. FOSAMAX [Suspect]
     Active Substance: ALENDRONATE SODIUM
     Dosage: 70 MG, QW
     Route: 048
     Dates: start: 20051011
  6. ALENDRONATE SODIUM. [Suspect]
     Active Substance: ALENDRONATE SODIUM
     Indication: OSTEOPENIA
     Dosage: 70 MG, UNK
     Route: 048
     Dates: start: 200803, end: 201001

REACTIONS (32)
  - Arthralgia [Unknown]
  - Femur fracture [Unknown]
  - Foot fracture [Unknown]
  - Restless legs syndrome [Unknown]
  - Breast lump removal [Unknown]
  - Gait disturbance [Unknown]
  - Musculoskeletal disorder [Unknown]
  - Radiotherapy to breast [Unknown]
  - Osteoporosis [Not Recovered/Not Resolved]
  - Femur fracture [Not Recovered/Not Resolved]
  - Invasive ductal breast carcinoma [Unknown]
  - Tricuspid valve incompetence [Unknown]
  - Low turnover osteopathy [Not Recovered/Not Resolved]
  - Neurectomy [Unknown]
  - Foot operation [Unknown]
  - Device failure [Unknown]
  - Keratomileusis [Unknown]
  - Hypertension [Unknown]
  - Cardiac disorder [Unknown]
  - Muscle spasms [Unknown]
  - Internal fixation of fracture [Unknown]
  - Stress fracture [Not Recovered/Not Resolved]
  - Cholecystectomy [Unknown]
  - Mitral valve prolapse [Unknown]
  - Bone disorder [Unknown]
  - Glaucoma [Unknown]
  - Foot operation [Unknown]
  - Mitral valve incompetence [Unknown]
  - Pain in extremity [Unknown]
  - Myalgia [Unknown]
  - Joint stiffness [Unknown]
  - Joint swelling [Unknown]

NARRATIVE: CASE EVENT DATE: 200205
